FAERS Safety Report 7763967-X (Version None)
Quarter: 2011Q3

REPORT INFORMATION
  Report Type: 
  Country: None (occurrence: None)
  Receive Date: 20110921
  Receipt Date: 20110223
  Transmission Date: 20111222
  Serious: No
  Sender: FDA-Public Use
  Company Number: US-BAYER-201040300NA

PATIENT
  Age: 34 Year
  Sex: Female

DRUGS (2)
  1. BETASERON [Suspect]
     Indication: RELAPSING-REMITTING MULTIPLE SCLEROSIS
     Dosage: 8 MIU, QOD
     Route: 058
     Dates: start: 20100919
  2. BETASERON [Suspect]
     Dosage: 6 MIU, QOD
     Route: 058
     Dates: start: 20100919, end: 20110203

REACTIONS (5)
  - BALANCE DISORDER [None]
  - HEADACHE [None]
  - MUSCULAR WEAKNESS [None]
  - FATIGUE [None]
  - DEPRESSION [None]
